FAERS Safety Report 8140615-0 (Version None)
Quarter: 2012Q1

REPORT INFORMATION
  Report Type: 
  Country: None (occurrence: None)
  Receive Date: 20120216
  Receipt Date: 20120201
  Transmission Date: 20120608
  Serious: Yes (Other)
  Sender: FDA-Public Use
  Company Number: IL-RANBAXY-2011RR-46984

PATIENT
  Age: 58 Year
  Sex: Male

DRUGS (2)
  1. SIMVASTATIN [Suspect]
     Indication: HYPERCHOLESTEROLAEMIA
     Dosage: 20 MG
     Route: 065
  2. ALBUTEROL SULFATE AUTOHALER [Concomitant]
     Indication: ASTHMA
     Dosage: UNK
     Route: 055

REACTIONS (1)
  - MERALGIA PARAESTHETICA [None]
